FAERS Safety Report 7039705-5 (Version None)
Quarter: 2010Q4

REPORT INFORMATION
  Report Type: 
  Country: None (occurrence: None)
  Receive Date: 20101012
  Receipt Date: 20101007
  Transmission Date: 20110411
  Serious: Yes (Hospitalization, Other)
  Sender: FDA-Public Use
  Company Number: PL-CEPHALON-2010005298

PATIENT
  Sex: Male
  Weight: 95 kg

DRUGS (1)
  1. EFFENTORA [Suspect]
     Indication: BREAKTHROUGH PAIN
     Route: 002

REACTIONS (1)
  - ILEUS [None]
